FAERS Safety Report 4666114-6 (Version None)
Quarter: 2005Q2

REPORT INFORMATION
  Report Type: 
  Country: None (occurrence: None)
  Receive Date: 20050519
  Receipt Date: 20050511
  Transmission Date: 20051028
  Serious: Yes (Death)
  Sender: FDA-Public Use
  Company Number: US-JNJFOC-20050503803

PATIENT
  Age: 47 Year
  Sex: Female

DRUGS (2)
  1. DOXIL [Suspect]
     Dosage: DOSE UNKNOWN, X 3-4 CYCLES
     Route: 042
  2. PAIN MEDICATION [Concomitant]

REACTIONS (1)
  - CARDIAC PERFORATION [None]
